FAERS Safety Report 24796425 (Version 3)
Quarter: 2025Q2

REPORT INFORMATION
  Report Type: Spontaneous
  Country: SK (occurrence: SK)
  Receive Date: 20250101
  Receipt Date: 20250529
  Transmission Date: 20250717
  Serious: Yes (Hospitalization, Other)
  Sender: ACCORD
  Company Number: SK-GLENMARK PHARMACEUTICALS-2024GMK094744

PATIENT
  Age: 67 Year
  Sex: Female

DRUGS (5)
  1. AZACITIDINE [Suspect]
     Active Substance: AZACITIDINE
     Indication: Acute myeloid leukaemia
     Dosage: 75 MILLIGRAM PER SQUARE METRE (D1-7)
     Dates: start: 20221122, end: 20221205
  2. POSACONAZOLE [Suspect]
     Active Substance: POSACONAZOLE
     Indication: Acute myeloid leukaemia
     Dates: start: 202211, end: 20221205
  3. VENETOCLAX [Suspect]
     Active Substance: VENETOCLAX
     Indication: Acute myeloid leukaemia
     Dates: start: 20221122, end: 20221205
  4. AZACITIDINE [Suspect]
     Active Substance: AZACITIDINE
     Indication: Acute myeloid leukaemia
     Dosage: DOSE REDUCED DAY 1-7
     Dates: start: 20221122, end: 20221205
  5. VENETOCLAX [Suspect]
     Active Substance: VENETOCLAX
     Indication: Acute myeloid leukaemia
     Dates: start: 2022

REACTIONS (5)
  - Cytopenia [Recovered/Resolved]
  - Pneumonia [Recovered/Resolved]
  - Fibrosis [Unknown]
  - Acute myeloid leukaemia recurrent [Unknown]
  - Neutropenia [Unknown]
